FAERS Safety Report 4784748-5 (Version None)
Quarter: 2005Q3

REPORT INFORMATION
  Report Type: 
  Country: None (occurrence: None)
  Receive Date: 20050930
  Receipt Date: 20050920
  Transmission Date: 20060218
  Serious: Yes (Life-Threatening, Hospitalization)
  Sender: FDA-Public Use
  Company Number: CZ-ROCHE-418194

PATIENT
  Age: 55 Year
  Sex: Male
  Weight: 77 kg

DRUGS (14)
  1. DACLIZUMAB [Suspect]
     Route: 042
     Dates: start: 20040510, end: 20040510
  2. DACLIZUMAB [Suspect]
     Dosage: FOR FOUR DOSES.
     Route: 042
     Dates: end: 20040621
  3. MYCOPHENOLATE MOFETIL [Suspect]
     Route: 048
     Dates: start: 20040510, end: 20040628
  4. TACROLIMUS [Suspect]
     Route: 048
     Dates: start: 20040510, end: 20040721
  5. TACROLIMUS [Suspect]
     Route: 048
     Dates: start: 20040722
  6. CORTICOSTEROIDS [Suspect]
     Route: 065
     Dates: start: 20040510
  7. RANISAN [Concomitant]
     Dates: start: 20040510, end: 20040626
  8. VENTER [Concomitant]
     Dates: start: 20040701
  9. ANOPYRIN [Concomitant]
     Dates: start: 20040513, end: 20040626
  10. COTRIM [Concomitant]
     Dates: start: 20040515
  11. HELICID [Concomitant]
     Dates: start: 20040626
  12. 1 CONCOMITANT DRUG [Concomitant]
     Dosage: DRUG REPORTED AS MYCOMAX.
     Dates: start: 20040611
  13. OMNIC [Concomitant]
     Dates: start: 20040610
  14. TACEF [Concomitant]
     Dates: start: 20040626, end: 20040629

REACTIONS (5)
  - GASTRIC ULCER HAEMORRHAGE [None]
  - GASTROINTESTINAL HAEMORRHAGE [None]
  - IMMUNOSUPPRESSION [None]
  - SEPSIS [None]
  - SHOCK HAEMORRHAGIC [None]
